FAERS Safety Report 9400481 (Version 1)
Quarter: 2013Q3

REPORT INFORMATION
  Report Type: Spontaneous
  Country: US (occurrence: None)
  Receive Date: 20130712
  Receipt Date: 20130712
  Transmission Date: 20140515
  Serious: Yes (Other)
  Sender: FDA-Public Use
  Company Number: None

PATIENT
  Age: 67 Year
  Sex: Female

DRUGS (3)
  1. EYLEA [Suspect]
  2. ZYRTEC [Concomitant]
  3. ZANTAC [Suspect]

REACTIONS (3)
  - Visual acuity reduced [None]
  - Vitreous floaters [None]
  - Inflammation [None]
